FAERS Safety Report 8510943-5 (Version None)
Quarter: 2012Q2

REPORT INFORMATION
  Report Type: 
  Country: None (occurrence: None)
  Receive Date: 20120406
  Receipt Date: 20120406
  Transmission Date: 20120825
  Serious: Yes (Hospitalization)
  Sender: FDA-Public Use
  Company Number: US-CYPR-2011-000078

PATIENT
  Sex: Male
  Weight: 144.2439 kg

DRUGS (13)
  1. ASPIRIN [Suspect]
     Indication: CORONARY ARTERY DISEASE
     Dosage: 81 MG QD, ORAL
     Route: 048
     Dates: start: 20110627
  2. PRASUGREL (NONE) [Suspect]
     Indication: ANTIPLATELET THERAPY
     Dosage: 10 MG QD ORAL
     Dates: start: 20110914
  3. ZETIA [Concomitant]
  4. LYRICA [Concomitant]
  5. LIPITOR [Concomitant]
  6. SYMBICORT [Concomitant]
  7. CYPHER STENT [Concomitant]
  8. PRASUGREL OR PLACEBO (ELI LILLY) [Suspect]
     Indication: ANTIPLATELET THERAPY
     Dosage: 10 MG QD ORAL
     Route: 048
     Dates: start: 20110413
  9. ACTOS [Concomitant]
  10. FUROSEMIDE [Concomitant]
  11. NEXIUM [Concomitant]
  12. PROPAFENONE HCL [Concomitant]
  13. GLYBURIDE [Concomitant]

REACTIONS (1)
  - COLON CANCER STAGE I [None]
